FAERS Safety Report 9402136 (Version 1)
Quarter: 2013Q3

REPORT INFORMATION
  Report Type: Report from Study
  Country: BD (occurrence: BD)
  Receive Date: 20130716
  Receipt Date: 20130716
  Transmission Date: 20140515
  Serious: Yes (Death, Hospitalization)
  Sender: FDA-Public Use
  Company Number: PHHY2013BD069896

PATIENT
  Age: 70 Year
  Sex: Female

DRUGS (3)
  1. ACLASTA [Suspect]
     Indication: OSTEOPOROSIS
     Dosage: 5 MG/100ML
     Route: 042
     Dates: start: 20120829
  2. ANTIHYPERTENSIVE DRUGS [Concomitant]
     Dosage: UNK
     Route: 048
  3. HYPNOTICS AND SEDATIVES [Concomitant]
     Dosage: UNK
     Route: 048

REACTIONS (2)
  - Death [Fatal]
  - Asthenia [Fatal]
